FAERS Safety Report 6386010-6 (Version None)
Quarter: 2009Q4

REPORT INFORMATION
  Report Type: 
  Country: None (occurrence: None)
  Receive Date: 20091002
  Receipt Date: 20081110
  Transmission Date: 20100525
  Serious: No
  Sender: FDA-Public Use
  Company Number: US-ASTRAZENECA-2008UW25102

PATIENT
  Age: 60 Year
  Sex: Female
  Weight: 113.4 kg

DRUGS (5)
  1. ARIMIDEX [Suspect]
     Indication: BREAST CANCER
     Route: 048
  2. METFORMIN [Concomitant]
  3. PRAVASTATIN [Concomitant]
  4. SYNTHROID [Concomitant]
  5. BLOOD PRESSURE MEDICATION (UNSPECIFIED) [Concomitant]

REACTIONS (3)
  - ONYCHOCLASIS [None]
  - ONYCHOMADESIS [None]
  - WEIGHT INCREASED [None]
